FAERS Safety Report 8518015-0 (Version None)
Quarter: 2012Q3

REPORT INFORMATION
  Report Type: 
  Country: None (occurrence: None)
  Receive Date: 20120718
  Receipt Date: 20110803
  Transmission Date: 20120928
  Serious: No
  Sender: FDA-Public Use
  Company Number: US-BRISTOL-MYERS SQUIBB COMPANY-15945363

PATIENT
  Age: 85 Year
  Sex: Male

DRUGS (3)
  1. COUMADIN [Suspect]
     Dates: end: 20110401
  2. MIRAPEX [Concomitant]
     Indication: PARKINSON'S DISEASE
     Dosage: 1DF=0.125MG IN MORNING AND NOON,1.5MG IN EVENING
     Dates: start: 20070101
  3. ENOXAPARIN [Suspect]
     Indication: DEEP VEIN THROMBOSIS
     Dosage: STRENGTH 40MG

REACTIONS (2)
  - HEADACHE [None]
  - RASH [None]
